FAERS Safety Report 5621407-0 (Version None)
Quarter: 2008Q1

REPORT INFORMATION
  Report Type: 
  Country: None (occurrence: None)
  Receive Date: 20080211
  Receipt Date: 20080109
  Transmission Date: 20080703
  Serious: No
  Sender: FDA-Public Use
  Company Number: US-BAYER-200811032NA

PATIENT
  Age: 26 Year
  Sex: Female
  Weight: 117 kg

DRUGS (2)
  1. MIRENA [Suspect]
     Indication: CONTRACEPTION
     Route: 015
     Dates: start: 20071228, end: 20080103
  2. MIRENA [Suspect]
     Route: 015
     Dates: start: 20080108

REACTIONS (2)
  - INTRA-UTERINE CONTRACEPTIVE DEVICE EXPELLED [None]
  - UTERINE SPASM [None]
